FAERS Safety Report 9235835 (Version 2)
Quarter: 2013Q4

REPORT INFORMATION
  Report Type: Spontaneous
  Country: JP (occurrence: JP)
  Receive Date: 20130417
  Receipt Date: 20131111
  Transmission Date: 20140711
  Serious: Yes (Hospitalization, Other)
  Sender: FDA-Public Use
  Company Number: PHHY2013JP031869

PATIENT
  Age: 85 Year
  Sex: Male

DRUGS (2)
  1. COMTAN [Suspect]
     Dosage: 100 MG, UNK
     Route: 048
  2. L-DOPA [Concomitant]
     Dosage: UNK UKN, UNK

REACTIONS (2)
  - Cholecystitis acute [Recovered/Resolved]
  - Pneumonia aspiration [Recovered/Resolved]
